FAERS Safety Report 4997873-0 (Version None)
Quarter: 2006Q2

REPORT INFORMATION
  Report Type: 
  Country: None (occurrence: None)
  Receive Date: 20060505
  Receipt Date: 20060505
  Transmission Date: 20061013
  Serious: No
  Sender: FDA-Public Use
  Company Number: None

PATIENT
  Age: 62 Year
  Sex: Female
  Weight: 75.2971 kg

DRUGS (7)
  1. ERLOTINIB [Suspect]
     Indication: BREAST CANCER METASTATIC
     Dosage: 150 MG PO
     Route: 048
     Dates: start: 20050506
  2. FERROUS SULFATE TAB [Concomitant]
  3. K-DUR 10 [Concomitant]
  4. LOTREL [Concomitant]
  5. PERCOSET [Concomitant]
  6. CLARINEX [Concomitant]
  7. NEXIUM [Concomitant]

REACTIONS (2)
  - DYSPNOEA [None]
  - INFECTION [None]
